FAERS Safety Report 6638686-3 (Version None)
Quarter: 2010Q1

REPORT INFORMATION
  Report Type: 
  Country: None (occurrence: None)
  Receive Date: 20100316
  Receipt Date: 20100316
  Transmission Date: 20100710
  Serious: Yes (Other)
  Sender: FDA-Public Use
  Company Number: None

PATIENT
  Age: 45 Year
  Sex: Female
  Weight: 54.4316 kg

DRUGS (2)
  1. LEVAQUIN [Suspect]
     Indication: SINUSITIS
     Dosage: TWICE A DAY 7 DAYS PO
     Route: 048
     Dates: start: 20100215, end: 20100222
  2. LEVAQUIN [Suspect]
     Indication: TOOTH INFECTION
     Dosage: TWICE A DAY 7 DAYS PO
     Route: 048
     Dates: start: 20091020, end: 20091025

REACTIONS (18)
  - ARTHRALGIA [None]
  - ASTHENIA [None]
  - CHROMATURIA [None]
  - CONFUSIONAL STATE [None]
  - CONTUSION [None]
  - DIZZINESS [None]
  - HAEMORRHAGE [None]
  - HEADACHE [None]
  - HEART RATE IRREGULAR [None]
  - HYPOAESTHESIA [None]
  - LYMPHADENOPATHY [None]
  - MYALGIA [None]
  - NIGHTMARE [None]
  - PARAESTHESIA [None]
  - PRURITUS [None]
  - RASH [None]
  - TENDONITIS [None]
  - TINNITUS [None]
